FAERS Safety Report 4609218-6 (Version None)
Quarter: 2005Q1

REPORT INFORMATION
  Report Type: 
  Country: None (occurrence: None)
  Receive Date: 20050315
  Receipt Date: 20050307
  Transmission Date: 20050727
  Serious: Yes (Disabling)
  Sender: FDA-Public Use
  Company Number: US-MERCK-0503USA01145

PATIENT
  Sex: Male

DRUGS (1)
  1. VIOXX [Suspect]
     Route: 048

REACTIONS (6)
  - CHEST PAIN [None]
  - DIARRHOEA [None]
  - GASTRIC DISORDER [None]
  - LIVER DISORDER [None]
  - NAUSEA [None]
  - URINARY TRACT DISORDER [None]
